FAERS Safety Report 7321834-X (Version None)
Quarter: 2011Q1

REPORT INFORMATION
  Report Type: 
  Country: None (occurrence: None)
  Receive Date: 20110228
  Receipt Date: 20110215
  Transmission Date: 20110831
  Serious: Yes (Hospitalization)
  Sender: FDA-Public Use
  Company Number: PHHY2011TR12143

PATIENT
  Age: 72 Year
  Sex: Female

DRUGS (3)
  1. LEFLUNOMIDE [Concomitant]
     Dosage: 20 MG, QD
  2. METHYLPREDNISOLONE [Concomitant]
     Dosage: 12 MG, QD
  3. HYDROXYCHLOROQUINE [Suspect]
     Indication: RHEUMATOID ARTHRITIS
     Dosage: 200 MG, QD

REACTIONS (7)
  - DIABETES MELLITUS [None]
  - CONJUNCTIVAL PALLOR [None]
  - JOINT SWELLING [None]
  - FINGER DEFORMITY [None]
  - HYPOGLYCAEMIA [None]
  - LOSS OF CONSCIOUSNESS [None]
  - SYNCOPE [None]
